FAERS Safety Report 6275160-0 (Version None)
Quarter: 2009Q3

REPORT INFORMATION
  Report Type: 
  Country: None (occurrence: None)
  Receive Date: 20090721
  Receipt Date: 20090709
  Transmission Date: 20100115
  Serious: Yes (Hospitalization)
  Sender: FDA-Public Use
  Company Number: AT-PFIZER INC-2008099252

PATIENT
  Age: 65 Year

DRUGS (7)
  1. BLINDED *NO SUBJECT DRUG [Suspect]
     Indication: NON-SMALL CELL LUNG CANCER
     Dosage: 37.5 MG, 1X/DAY, 4 WEEKS
     Route: 048
     Dates: start: 20081107
  2. BLINDED *PLACEBO [Suspect]
     Indication: NON-SMALL CELL LUNG CANCER
     Dosage: 37.5 MG, 1X/DAY, 4 WEEKS
     Route: 048
     Dates: start: 20081107
  3. BLINDED SUNITINIB MALATE [Suspect]
     Indication: NON-SMALL CELL LUNG CANCER
     Dosage: 37.5 MG, 1X/DAY, 4 WEEKS
     Route: 048
     Dates: start: 20081107
  4. *ERLOTINIB [Suspect]
     Indication: NON-SMALL CELL LUNG CANCER
     Dosage: 150 MG, 1X/DAY, 4 WEEKS
     Route: 048
     Dates: start: 20081107
  5. DIHYDROCODEINE BITARTRATE INJ [Concomitant]
     Route: 048
     Dates: start: 20081110
  6. SPIRIVA [Concomitant]
     Route: 055
     Dates: start: 20050101
  7. LOPERAMIDE HYDROCHLORIDE [Concomitant]
     Route: 048
     Dates: start: 20081118

REACTIONS (2)
  - DERMATITIS ACNEIFORM [None]
  - PALMAR-PLANTAR ERYTHRODYSAESTHESIA SYNDROME [None]
